FAERS Safety Report 5154532-1 (Version None)
Quarter: 2006Q4

REPORT INFORMATION
  Report Type: 
  Country: None (occurrence: None)
  Receive Date: 20061114
  Receipt Date: 20061101
  Transmission Date: 20070319
  Serious: Yes (Other)
  Sender: FDA-Public Use
  Company Number: 2006117451

PATIENT
  Age: 63 Year
  Sex: Male

DRUGS (3)
  1. NORVASC [Suspect]
     Dosage: 5 MG, ORAL
     Route: 048
  2. WARFARIN SODIUM [Concomitant]
  3. ENALAPRIL MALEATE [Concomitant]

REACTIONS (1)
  - BLOOD CREATINE PHOSPHOKINASE INCREASED [None]
